FAERS Safety Report 8435943-5 (Version None)
Quarter: 2012Q2

REPORT INFORMATION
  Report Type: 
  Country: None (occurrence: None)
  Receive Date: 20120608
  Receipt Date: 20120608
  Transmission Date: 20120825
  Serious: Yes (Hospitalization)
  Sender: FDA-Public Use
  Company Number: None

PATIENT
  Age: 60 Year
  Sex: Female
  Weight: 127.0072 kg

DRUGS (2)
  1. CYMBALTA [Suspect]
     Indication: DEPRESSION
     Dosage: ONE PILL/60 MG, DAILY PO
     Route: 048
     Dates: start: 20120319, end: 20120607
  2. CYMBALTA [Suspect]
     Indication: DEPRESSION
     Dosage: ONE PILL, 30 MG, DAILY, PO
     Route: 048
     Dates: start: 20120518, end: 20120607

REACTIONS (6)
  - DISTURBANCE IN ATTENTION [None]
  - IMPAIRED WORK ABILITY [None]
  - IRRITABILITY [None]
  - AGITATION [None]
  - SUICIDAL IDEATION [None]
  - HYPERHIDROSIS [None]
